FAERS Safety Report 18091008 (Version 1)
Quarter: 2020Q3

REPORT INFORMATION
  Report Type: Spontaneous
  Country: US (occurrence: US)
  Receive Date: 20200729
  Receipt Date: 20200729
  Transmission Date: 20201103
  Serious: Yes (Hospitalization)
  Sender: FDA-Public Use
  Company Number: None

PATIENT
  Age: 69 Year
  Sex: Female
  Weight: 59 kg

DRUGS (22)
  1. LATANOPROST. [Concomitant]
     Active Substance: LATANOPROST
  2. OXYCODONE [Concomitant]
     Active Substance: OXYCODONE
  3. PANTOPRAZOLE [Concomitant]
     Active Substance: PANTOPRAZOLE
  4. ESCITALOPRAM [Concomitant]
     Active Substance: ESCITALOPRAM OXALATE
  5. GUAIFENESIN. [Concomitant]
     Active Substance: GUAIFENESIN
  6. THIAMINE. [Concomitant]
     Active Substance: THIAMINE
  7. FUROSEMIDE. [Concomitant]
     Active Substance: FUROSEMIDE
  8. GLYCOLAX [Concomitant]
     Active Substance: POLYETHYLENE GLYCOL 3350
  9. DOCUSATE [Concomitant]
     Active Substance: DOCUSATE
  10. POTASSIUM CHLORIDE. [Concomitant]
     Active Substance: POTASSIUM CHLORIDE
  11. ACETAMINOPHEN. [Concomitant]
     Active Substance: ACETAMINOPHEN
  12. ALBUTEROL. [Concomitant]
     Active Substance: ALBUTEROL
  13. ARFORMOTEROL [Concomitant]
     Active Substance: ARFORMOTEROL
  14. FOLIC ACID. [Concomitant]
     Active Substance: FOLIC ACID
  15. GABAPENTIN. [Concomitant]
     Active Substance: GABAPENTIN
  16. DUO?NEB [Concomitant]
  17. MELATONIN [Concomitant]
     Active Substance: MELATONIN
  18. XARELTO [Suspect]
     Active Substance: RIVAROXABAN
     Indication: PULMONARY EMBOLISM
     Route: 048
     Dates: start: 20200705, end: 20200728
  19. BUDESONIDE. [Concomitant]
     Active Substance: BUDESONIDE
  20. DULOXETINE. [Concomitant]
     Active Substance: DULOXETINE
  21. IPRATROPIUM NASAL SPRAY [Concomitant]
     Active Substance: IPRATROPIUM
  22. SLOW MAG [Concomitant]
     Active Substance: MAGNESIUM CHLORIDE

REACTIONS (1)
  - International normalised ratio increased [None]

NARRATIVE: CASE EVENT DATE: 20200726
